FAERS Safety Report 16713130 (Version 1)
Quarter: 2019Q3

REPORT INFORMATION
  Report Type: Report from Study
  Country: RO (occurrence: RO)
  Receive Date: 20190817
  Receipt Date: 20190817
  Transmission Date: 20191004
  Serious: Yes (Other)
  Sender: FDA-Public Use
  Company Number: RO-BRISTOL-MYERS SQUIBB COMPANY-BMS-2019-077106

PATIENT
  Age: 75 Year
  Sex: Female

DRUGS (2)
  1. APIXABAN [Suspect]
     Active Substance: APIXABAN
     Indication: CEREBROVASCULAR ACCIDENT PROPHYLAXIS
     Dosage: 2.5 MILLIGRAM, BID
     Route: 048
     Dates: start: 20190709, end: 20190723
  2. VESSEL DUE [Concomitant]
     Active Substance: SULODEXIDE
     Indication: VARICOSE ULCERATION
     Dosage: UNK
     Route: 065

REACTIONS (7)
  - Vasodilatation [Not Recovered/Not Resolved]
  - Burning sensation [Not Recovered/Not Resolved]
  - General physical health deterioration [Not Recovered/Not Resolved]
  - Lung disorder [Recovering/Resolving]
  - Vessel perforation [Not Recovered/Not Resolved]
  - Dizziness [Not Recovered/Not Resolved]
  - Headache [Recovering/Resolving]

NARRATIVE: CASE EVENT DATE: 20190720
